FAERS Safety Report 22620230 (Version 1)
Quarter: 2023Q2

REPORT INFORMATION
  Report Type: Spontaneous
  Country: US (occurrence: None)
  Receive Date: 20230616
  Receipt Date: 20230616
  Transmission Date: 20230722
  Serious: Yes (Hospitalization)
  Sender: FDA-Public Use
  Company Number: None

PATIENT
  Age: 69 Year
  Sex: Male
  Weight: 78.3 kg

DRUGS (2)
  1. LEVOFLOXACIN [Suspect]
     Active Substance: LEVOFLOXACIN
     Indication: Urinary tract infection
     Dosage: 7 TABLETS DAILY ORAL?
     Route: 048
     Dates: start: 20230512, end: 20230519
  2. FOLIC ACID [Concomitant]
     Active Substance: FOLIC ACID

REACTIONS (5)
  - Peripheral swelling [None]
  - Pain in extremity [None]
  - Peripheral swelling [None]
  - Haemoglobin decreased [None]
  - Decreased activity [None]

NARRATIVE: CASE EVENT DATE: 20230519
